FAERS Safety Report 7301487-7 (Version None)
Quarter: 2011Q1

REPORT INFORMATION
  Report Type: 
  Country: None (occurrence: None)
  Receive Date: 20110218
  Receipt Date: 20100510
  Transmission Date: 20110831
  Serious: No
  Sender: FDA-Public Use
  Company Number: US-BRISTOL-MYERS SQUIBB COMPANY-15098874

PATIENT
  Age: 53 Year
  Sex: Female
  Weight: 66 kg

DRUGS (2)
  1. KENALOG [Suspect]
     Indication: EAR DISCOMFORT
     Route: 030
  2. TYLENOL [Concomitant]

REACTIONS (3)
  - MOOD SWINGS [None]
  - IRRITABILITY [None]
  - DRUG INEFFECTIVE [None]
